FAERS Safety Report 7011775-X (Version None)
Quarter: 2010Q3

REPORT INFORMATION
  Report Type: 
  Country: None (occurrence: None)
  Receive Date: 20100923
  Receipt Date: 20090804
  Transmission Date: 20110219
  Serious: Yes (Hospitalization, Other)
  Sender: FDA-Public Use
  Company Number: US-WYE-H10453009

PATIENT
  Sex: Female
  Weight: 61.29 kg

DRUGS (4)
  1. PREMARIN [Suspect]
     Indication: OESTROGEN REPLACEMENT THERAPY
     Dosage: .9 MG EVERY
     Route: 048
     Dates: start: 19850101, end: 20080101
  2. PREMARIN [Suspect]
     Dosage: .625 MG EVERY
     Route: 048
     Dates: start: 20080101, end: 20090622
  3. HYDROCHLOROTHIAZIDE [Concomitant]
  4. CRESTOR [Concomitant]

REACTIONS (1)
  - BREAST CANCER [None]
